FAERS Safety Report 6368918-0 (Version None)
Quarter: 2009Q3

REPORT INFORMATION
  Report Type: 
  Country: None (occurrence: None)
  Receive Date: 20090917
  Receipt Date: 20090917
  Transmission Date: 20100115
  Serious: No
  Sender: FDA-Public Use
  Company Number: None

PATIENT
  Age: 32 Year
  Sex: Female
  Weight: 58.0604 kg

DRUGS (1)
  1. EFFEXOR XR [Suspect]
     Indication: DEPRESSION
     Dosage: 150 MG 3 TIMES A DAY PO
     Route: 048
     Dates: start: 20001001, end: 20090201

REACTIONS (7)
  - AMNESIA [None]
  - APHASIA [None]
  - COGNITIVE DISORDER [None]
  - FEAR [None]
  - IMPAIRED WORK ABILITY [None]
  - LEARNING DISORDER [None]
  - NERVOUS SYSTEM DISORDER [None]
